FAERS Safety Report 19545593 (Version 2)
Quarter: 2021Q3

REPORT INFORMATION
  Report Type: Spontaneous
  Country: NL (occurrence: NL)
  Receive Date: 20210714
  Receipt Date: 20210729
  Transmission Date: 20211014
  Serious: Yes (Other)
  Sender: FDA-Public Use
  Company Number: NL-AUROBINDO-AUR-APL-2021-028440

PATIENT
  Age: 87 Year
  Sex: Female

DRUGS (5)
  1. OMEPRAZOLE. [Concomitant]
     Active Substance: OMEPRAZOLE
     Indication: CYSTITIS
     Dosage: UNK
     Route: 065
  2. NIFEDIPINE. [Concomitant]
     Active Substance: NIFEDIPINE
     Indication: PRODUCT USED FOR UNKNOWN INDICATION
     Dosage: UNK
     Route: 065
  3. NAPROXEN. [Concomitant]
     Active Substance: NAPROXEN
     Indication: TENDONITIS
     Dosage: 1 DOSAGE FORM, TWO TIMES A DAY (ONE WITH BREAK FAST 1 WITH DINNER)
     Route: 048
     Dates: start: 20210414
  4. CIPROFLOXACIN AUROBINDO 500 MG FILM?COATED TABLET [Suspect]
     Active Substance: CIPROFLOXACIN HYDROCHLORIDE
     Indication: CYSTITIS
     Dosage: 2 DOSAGE FORM, DAILY
     Route: 065
     Dates: start: 20210326
  5. XARELTO [Concomitant]
     Active Substance: RIVAROXABAN
     Indication: PRODUCT USED FOR UNKNOWN INDICATION
     Dosage: UNK
     Route: 065

REACTIONS (8)
  - Pain in extremity [Recovered/Resolved]
  - Tendonitis [Not Recovered/Not Resolved]
  - Immobile [Not Recovered/Not Resolved]
  - Tendon discomfort [Not Recovered/Not Resolved]
  - Oedema peripheral [Not Recovered/Not Resolved]
  - Erythema [Not Recovered/Not Resolved]
  - Depressed mood [Not Recovered/Not Resolved]
  - Gait disturbance [Not Recovered/Not Resolved]

NARRATIVE: CASE EVENT DATE: 20210414
